FAERS Safety Report 25691307 (Version 2)
Quarter: 2025Q4

REPORT INFORMATION
  Report Type: Spontaneous
  Country: US (occurrence: US)
  Receive Date: 20250818
  Receipt Date: 20251010
  Transmission Date: 20260118
  Serious: Yes (Other)
  Sender: CATALYST PHARMA
  Company Number: US-CATALYST PHARMACEUTICALS, INC-US-CATA-25-01170

PATIENT
  Age: 58 Year
  Sex: Female
  Weight: 90.703 kg

DRUGS (29)
  1. FIRDAPSE [Suspect]
     Active Substance: AMIFAMPRIDINE PHOSPHATE
     Indication: Myasthenic syndrome
     Dosage: ONE HALF TABLET OR 5 MG BY MOUTH THREE TIMES PER DAY FOR FOUR DAYS AND INCREASE BY ONE HALF TABLET O
     Route: 048
     Dates: start: 20230927, end: 2023
  2. FIRDAPSE [Suspect]
     Active Substance: AMIFAMPRIDINE PHOSPHATE
     Dosage: 60 MG TOTAL DAILY (TWO TABLETS THREE TIMES PER DAY)
     Route: 048
     Dates: start: 20231020, end: 2025
  3. FIRDAPSE [Suspect]
     Active Substance: AMIFAMPRIDINE PHOSPHATE
     Dosage: 7 TABLETS TOTAL DAILY IN DIVIDED DOSES
     Route: 048
     Dates: start: 20250826
  4. SOMA [Concomitant]
     Active Substance: CARISOPRODOL
     Indication: Muscle spasms
     Dosage: 250 MG THREE TIMES DAILY
     Route: 065
  5. CHLORZOXAZONE [Concomitant]
     Active Substance: CHLORZOXAZONE
     Indication: Muscle spasms
     Dosage: 500 MG TWO TIMES A DAY
     Route: 065
  6. CYMBALTA [Concomitant]
     Active Substance: DULOXETINE HYDROCHLORIDE
     Indication: Depression
     Dosage: 30 MG TWO TIMES A DAY
     Route: 065
  7. CYMBALTA [Concomitant]
     Active Substance: DULOXETINE HYDROCHLORIDE
     Indication: Myalgia
  8. FLONASE [Concomitant]
     Active Substance: FLUTICASONE PROPIONATE
     Indication: Seasonal allergy
     Dosage: TWO SPRAYS DAILY
     Route: 045
  9. GABAPENTIN [Concomitant]
     Active Substance: GABAPENTIN
     Indication: Neuralgia
     Dosage: 300 MG THREE TIMES A DAY
     Route: 065
  10. HYOSCYAMINE [Concomitant]
     Active Substance: HYOSCYAMINE
     Indication: Gastrointestinal pain
     Dosage: 0.125 MG EVERY FOUR HOURS
     Route: 065
  11. LYSINE [Concomitant]
     Active Substance: LYSINE
     Indication: Oral herpes
     Dosage: 500 MG AS NEEDED
     Route: 065
  12. LEVOCETIRIZINE [Concomitant]
     Active Substance: LEVOCETIRIZINE
     Indication: Seasonal allergy
     Dosage: 5 MG DAILY
     Route: 065
  13. LEVOTHYROXINE [Concomitant]
     Active Substance: LEVOTHYROXINE
     Indication: Hypothyroidism
     Dosage: ONE FULL TABLET FOUR TIMES A WEEK
     Route: 065
  14. LEVOTHYROXINE [Concomitant]
     Active Substance: LEVOTHYROXINE
     Dosage: A TABLET AND A HALF (75 MCG) ON MONDAY WEDNESDAY AND FRIDAY (THREE TIMES A WEEK)
     Route: 065
  15. MAGNESIUM [Concomitant]
     Active Substance: MAGNESIUM
     Indication: Magnesium deficiency
     Dosage: 300 MG DAILY
     Route: 065
  16. ACETYLCYSTEINE [Concomitant]
     Active Substance: ACETYLCYSTEINE
     Indication: Hypovitaminosis
     Dosage: TWO CAPSULES (1200 MG) DAILY
     Route: 065
  17. PLAQUENIL [Concomitant]
     Active Substance: HYDROXYCHLOROQUINE SULFATE
     Indication: Arthritis
     Dosage: 200 MG TWICE DAILY
     Route: 065
  18. PROBIOTICS NOS [Concomitant]
     Active Substance: PROBIOTICS NOS
     Indication: Gastrointestinal disorder prophylaxis
     Dosage: 1 CAPSULE DAILY
     Route: 065
  19. TURMERIC COMPLEX [Concomitant]
     Indication: Hypovitaminosis
     Dosage: 1000 MG DAY (TWO CAPSULES DAILY)
     Route: 065
  20. HERBALS [Concomitant]
     Active Substance: HERBALS
     Indication: Immune disorder prophylaxis
     Dosage: ONE TABLET AS NEEDED
     Route: 065
  21. VALACYCLOVIR [Concomitant]
     Active Substance: VALACYCLOVIR HYDROCHLORIDE
     Indication: Oral herpes
     Dosage: 1 GRAM TWICE A DAY
     Route: 065
  22. VITAMIN B COMPLEX [Concomitant]
     Active Substance: CYANOCOBALAMIN\DEXPANTHENOL\NIACINAMIDE\PYRIDOXINE HYDROCHLORIDE\RIBOFLAVIN 5^-PHOSPHATE SODIUM\THIA
     Indication: Hypovitaminosis
     Dosage: ONE TABLET DAILY
     Route: 065
  23. VITAMIN C [Concomitant]
     Active Substance: ASCORBIC ACID
     Indication: Hypovitaminosis
     Dosage: 500 MG ONCE DAILY
     Route: 065
  24. VITAMIN D3 [Concomitant]
     Active Substance: CHOLECALCIFEROL
     Indication: Hypovitaminosis
     Dosage: 125 MCG DAILY
     Route: 065
  25. DULOXETINE [Concomitant]
     Active Substance: DULOXETINE
     Indication: Depression
     Dosage: 30 MG TWO TIMES A DAY
     Route: 065
  26. DULOXETINE [Concomitant]
     Active Substance: DULOXETINE
     Indication: Myalgia
  27. IPRATROPIUM BROMIDE [Concomitant]
     Active Substance: IPRATROPIUM BROMIDE
     Indication: Seasonal allergy
     Dosage: TWO SPRAYS AS NEEDED
     Route: 045
  28. VITAMIN B12 [Concomitant]
     Active Substance: CYANOCOBALAMIN
     Indication: Hypovitaminosis
     Dosage: 1000 MCG ONCE A MONTH
     Route: 065
  29. OFLOXACIN [Concomitant]
     Active Substance: OFLOXACIN
     Indication: Bacterial infection
     Dosage: 1 DROP DAILY
     Route: 001

REACTIONS (4)
  - Myasthenic syndrome [Not Recovered/Not Resolved]
  - Condition aggravated [Not Recovered/Not Resolved]
  - Arthralgia [Not Recovered/Not Resolved]
  - Back pain [Not Recovered/Not Resolved]

NARRATIVE: CASE EVENT DATE: 20250808
